FAERS Safety Report 5199104-8 (Version None)
Quarter: 2006Q4

REPORT INFORMATION
  Report Type: 
  Country: None (occurrence: None)
  Receive Date: 20060919
  Receipt Date: 20060306
  Transmission Date: 20070319
  Serious: Yes (Other)
  Sender: FDA-Public Use
  Company Number: HQWYE238409MAR06

PATIENT
  Age: 72 Year
  Sex: Female
  Weight: 67.19 kg

DRUGS (1)
  1. ADVIL [Suspect]
     Indication: ARTHRITIS
     Dosage: 1 CAPSULE TWICE DAILY AS NEEDED, ORAL
     Route: 048
     Dates: start: 20050101

REACTIONS (1)
  - JOINT SWELLING [None]
